FAERS Safety Report 10530991 (Version 1)
Quarter: 2014Q4

REPORT INFORMATION
  Report Type: Spontaneous
  Country: US (occurrence: None)
  Receive Date: 20141020
  Receipt Date: 20141020
  Transmission Date: 20150528
  Serious: Yes (Hospitalization)
  Sender: FDA-Public Use
  Company Number: None

PATIENT
  Age: 64 Year
  Sex: Male
  Weight: 97.7 kg

DRUGS (1)
  1. BUPRENORPHINE/NALOXONE [Suspect]
     Active Substance: BUPRENORPHINE\NALOXONE
     Indication: PAIN
     Route: 048
     Dates: start: 20140802, end: 20141015

REACTIONS (4)
  - Oxygen saturation decreased [None]
  - Slow response to stimuli [None]
  - Somnolence [None]
  - Sedation [None]

NARRATIVE: CASE EVENT DATE: 20141015
